FAERS Safety Report 9694624 (Version 4)
Quarter: 2014Q1

REPORT INFORMATION
  Report Type: Spontaneous
  Country: DE (occurrence: DE)
  Receive Date: 20131119
  Receipt Date: 20140127
  Transmission Date: 20141002
  Serious: Yes (Hospitalization)
  Sender: FDA-Public Use
  Company Number: DE-ROCHE-1305051

PATIENT
  Sex: Male
  Weight: 96 kg

DRUGS (3)
  1. XOLAIR [Suspect]
     Indication: ASTHMA
     Dosage: 150 MG (600 MG PER INJECTION).
     Route: 058
     Dates: start: 20131017, end: 20131017
  2. FORMATRIS [Concomitant]
  3. NOVOPULMON [Concomitant]

REACTIONS (1)
  - Skin reaction [Recovered/Resolved]
